FAERS Safety Report 9321052 (Version 1)
Quarter: 2013Q2

REPORT INFORMATION
  Report Type: Spontaneous
  Country: US (occurrence: US)
  Receive Date: 20130531
  Receipt Date: 20130531
  Transmission Date: 20140414
  Serious: No
  Sender: FDA-Public Use
  Company Number: US-009507513-1304USA016670

PATIENT
  Sex: Female

DRUGS (2)
  1. NUVARING [Suspect]
     Route: 067
  2. CIPROFLOXACIN [Concomitant]

REACTIONS (1)
  - Clostridium difficile infection [Unknown]
